FAERS Safety Report 6665749-9 (Version None)
Quarter: 2010Q2

REPORT INFORMATION
  Report Type: 
  Country: None (occurrence: None)
  Receive Date: 20100401
  Receipt Date: 20100111
  Transmission Date: 20101027
  Serious: No
  Sender: FDA-Public Use
  Company Number: DL2010-0013

PATIENT
  Age: 39 Year
  Sex: Female
  Weight: 58.9676 kg

DRUGS (5)
  1. MIFEPRISTONE (MIFEPREX) [Suspect]
     Indication: ABORTION INDUCED
     Dosage: 200 MG, ORAL
     Route: 048
     Dates: start: 20090819
  2. MISOPROSTOL [Suspect]
     Dosage: 800 MCG, BUCCAL
     Route: 002
     Dates: start: 20090820
  3. DOXYCYCLINE [Concomitant]
  4. TYLENOL W/ CODEINE NO. 3 [Concomitant]
  5. PHENERGAN HCL [Concomitant]

REACTIONS (4)
  - ANAEMIA [None]
  - ASTHENIA [None]
  - HAEMORRHAGE [None]
  - HEADACHE [None]
